FAERS Safety Report 7628131-3 (Version None)
Quarter: 2011Q3

REPORT INFORMATION
  Report Type: 
  Country: None (occurrence: None)
  Receive Date: 20110720
  Receipt Date: 20110720
  Transmission Date: 20111222
  Serious: No
  Sender: FDA-Public Use
  Company Number: None

PATIENT
  Age: 57 Year
  Sex: Female

DRUGS (2)
  1. FORTEO [Suspect]
     Indication: CHONDROPATHY
     Dosage: 20MCG QD SUBQ
     Route: 058
     Dates: start: 20110322, end: 20110718
  2. FORTEO [Suspect]
     Indication: BONE DISORDER
     Dosage: 20MCG QD SUBQ
     Route: 058
     Dates: start: 20110322, end: 20110718

REACTIONS (1)
  - HYPOTHYROIDISM [None]
